FAERS Safety Report 13522752 (Version 2)
Quarter: 2017Q2

REPORT INFORMATION
  Report Type: Report from Study
  Country: US (occurrence: US)
  Receive Date: 20170508
  Receipt Date: 20170530
  Transmission Date: 20170830
  Serious: Yes (Hospitalization)
  Sender: FDA-Public Use
  Company Number: US-AMGEN-USACT2017067878

PATIENT
  Age: 40 Year
  Sex: Female

DRUGS (7)
  1. LYRICA [Concomitant]
     Active Substance: PREGABALIN
     Dosage: 25 ML, BID
     Route: 048
     Dates: start: 20161220
  2. MORPHINE [Concomitant]
     Active Substance: MORPHINE
     Dosage: 30 ML, Q12H
     Route: 048
     Dates: start: 20161220
  3. OXYCODONE [Concomitant]
     Active Substance: OXYCODONE
     Dosage: 5 ML, AS NECESSARY
     Route: 048
     Dates: start: 20161220, end: 2017
  4. ROPIVACAINE [Concomitant]
     Active Substance: ROPIVACAINE
     Dosage: 2 ML, QH
     Route: 042
     Dates: start: 20161220, end: 2017
  5. ASPIRIN. [Concomitant]
     Active Substance: ASPIRIN
     Indication: THROMBOSIS PROPHYLAXIS
     Dosage: 325 MG, QD
     Route: 048
     Dates: start: 20161220, end: 2017
  6. DENOSUMAB [Suspect]
     Active Substance: DENOSUMAB
     Indication: BONE GIANT CELL TUMOUR
     Dosage: 120 MG, Q4WK
     Route: 058
     Dates: start: 20091215, end: 20160303
  7. ROPIVACAINE [Concomitant]
     Active Substance: ROPIVACAINE
     Indication: PAIN
     Dosage: 6 ML, QH
     Route: 042

REACTIONS (1)
  - Pathological fracture [Not Recovered/Not Resolved]

NARRATIVE: CASE EVENT DATE: 20161220
